FAERS Safety Report 7337976-9 (Version None)
Quarter: 2011Q1

REPORT INFORMATION
  Report Type: 
  Country: None (occurrence: None)
  Receive Date: 20110210
  Receipt Date: 20101014
  Transmission Date: 20110831
  Serious: No
  Sender: FDA-Public Use
  Company Number: 1000016822

PATIENT
  Age: 45 Year
  Sex: Female

DRUGS (3)
  1. HYDROCODONE (HYDROCODONE) (HYDROCODONE) [Concomitant]
  2. LYRICA [Concomitant]
  3. SAVELLA [Suspect]
     Indication: FIBROMYALGIA
     Dosage: 12.5 MG (12,5 MG, 1 IN 1 D), ORAL
     Route: 048
     Dates: start: 20101001, end: 20101001

REACTIONS (3)
  - CONFUSIONAL STATE [None]
  - HEADACHE [None]
  - FEELING ABNORMAL [None]
